FAERS Safety Report 6335547-4 (Version None)
Quarter: 2009Q3

REPORT INFORMATION
  Report Type: 
  Country: None (occurrence: None)
  Receive Date: 20090831
  Receipt Date: 20090825
  Transmission Date: 20100115
  Serious: Yes (Death)
  Sender: FDA-Public Use
  Company Number: US-CELGENEUS-163-21880-09081898

PATIENT
  Sex: Female

DRUGS (3)
  1. REVLIMID [Suspect]
     Indication: MYELODYSPLASTIC SYNDROME
     Route: 048
     Dates: start: 20080701, end: 20090801
  2. REVLIMID [Suspect]
     Route: 048
     Dates: start: 20060901, end: 20070201
  3. REVLIMID [Suspect]
     Route: 048
     Dates: start: 20070301, end: 20080201

REACTIONS (1)
  - DEATH [None]
